FAERS Safety Report 10308150 (Version 1)
Quarter: 2014Q3

REPORT INFORMATION
  Report Type: Spontaneous
  Country: JP (occurrence: None)
  Receive Date: 20140711
  Receipt Date: 20140711
  Transmission Date: 20150326
  Serious: Yes (Hospitalization, Other)
  Sender: FDA-Public Use
  Company Number: ABR_01717_2014

PATIENT
  Age: 22 Year
  Sex: Male

DRUGS (1)
  1. LAMOTRIGINE (LAMOTRIGINE) [Suspect]
     Active Substance: LAMOTRIGINE
     Indication: DEPRESSION

REACTIONS (3)
  - Anger [None]
  - Impulsive behaviour [None]
  - Homicidal ideation [None]
